FAERS Safety Report 24444312 (Version 2)
Quarter: 2024Q4

REPORT INFORMATION
  Report Type: Report from Study
  Country: US (occurrence: US)
  Receive Date: 20241016
  Receipt Date: 20241017
  Transmission Date: 20250115
  Serious: No
  Sender: ROCHE
  Company Number: US-ROCHE-2822957

PATIENT
  Age: 73 Year
  Sex: Male
  Weight: 99.79 kg

DRUGS (4)
  1. RITUXAN [Suspect]
     Active Substance: RITUXIMAB
     Indication: Interstitial lung disease
     Route: 041
     Dates: start: 2019
  2. RITUXAN [Suspect]
     Active Substance: RITUXIMAB
     Indication: Pneumonia
  3. GABAPENTIN [Concomitant]
     Active Substance: GABAPENTIN
     Indication: Neuropathy peripheral
     Route: 048
  4. VITAMIN C [Concomitant]
     Active Substance: ASCORBIC ACID
     Route: 048

REACTIONS (2)
  - Off label use [Unknown]
  - Immunosuppression [Recovered/Resolved]
